FAERS Safety Report 5527486-3 (Version None)
Quarter: 2007Q4

REPORT INFORMATION
  Report Type: 
  Country: None (occurrence: None)
  Receive Date: 20071128
  Receipt Date: 20071121
  Transmission Date: 20080405
  Serious: Yes (Other)
  Sender: FDA-Public Use
  Company Number: PHRM2007FR02657

PATIENT
  Age: 33 Year
  Sex: Male

DRUGS (1)
  1. EXJADE [Suspect]
     Indication: THALASSAEMIA
     Dosage: 20 MG/KG/DAY
     Route: 048

REACTIONS (2)
  - HEPATIC FAILURE [None]
  - TRANSAMINASES INCREASED [None]
